FAERS Safety Report 4447917-X (Version None)
Quarter: 2004Q3

REPORT INFORMATION
  Report Type: 
  Country: None (occurrence: None)
  Receive Date: 20040909
  Receipt Date: 20040909
  Transmission Date: 20050211
  Serious: Yes (Death, Life-Threatening, Hospitalization, Disabling)
  Sender: FDA-Public Use
  Company Number: None

PATIENT
  Age: 69 Year
  Sex: Male
  Weight: 69.2 kg

DRUGS (7)
  1. HEPARIN [Suspect]
     Dosage: 1300U/HR
     Dates: start: 20040624, end: 20040625
  2. INSULIN REG HUMAN 100 U/ML INJ NOVOLIN R [Concomitant]
  3. SIMVASTATIN TAB [Concomitant]
  4. FERROUS SULFATE TAB, EC [Concomitant]
  5. HEPARIN [Concomitant]
  6. WARFARIN SODIUM [Concomitant]
  7. ARGATROPAN [Concomitant]

REACTIONS (1)
  - THROMBOCYTOPENIA [None]
